FAERS Safety Report 13720489 (Version 2)
Quarter: 2017Q3

REPORT INFORMATION
  Report Type: Spontaneous
  Country: ES (occurrence: ES)
  Receive Date: 20170706
  Receipt Date: 20170726
  Transmission Date: 20171127
  Serious: Yes (Hospitalization)
  Sender: FDA-Public Use
  Company Number: ES-CONCORDIA PHARMACEUTICALS INC.-GSH201707-003893

PATIENT
  Age: 27 Year
  Sex: Female

DRUGS (2)
  1. HYDROXYCHLOROQUINE [Suspect]
     Active Substance: HYDROXYCHLOROQUINE
     Route: 048
  2. HYDROXYCHLOROQUINE [Suspect]
     Active Substance: HYDROXYCHLOROQUINE
     Indication: SYSTEMIC LUPUS ERYTHEMATOSUS
     Dosage: EQUIVALENT TO 155 MG OF HYDROXYCHLOROQUINE BASE
     Route: 065

REACTIONS (15)
  - Toxicity to various agents [Recovering/Resolving]
  - Blood glucose decreased [Recovering/Resolving]
  - Torsade de pointes [Recovering/Resolving]
  - Blood lactic acid increased [Recovering/Resolving]
  - Ventricular tachycardia [Recovering/Resolving]
  - Blood pressure decreased [Recovering/Resolving]
  - Blood pH decreased [Recovering/Resolving]
  - Loss of consciousness [Recovering/Resolving]
  - Pupils unequal [Recovering/Resolving]
  - Electrocardiogram QT prolonged [Recovering/Resolving]
  - Sinus rhythm [Recovering/Resolving]
  - Mydriasis [Recovering/Resolving]
  - Blood bicarbonate decreased [Recovering/Resolving]
  - Hypokalaemia [Recovering/Resolving]
  - Coma scale abnormal [Recovering/Resolving]
